FAERS Safety Report 25905917 (Version 1)
Quarter: 2025Q4

REPORT INFORMATION
  Report Type: Spontaneous
  Country: CN (occurrence: CN)
  Receive Date: 20251010
  Receipt Date: 20251010
  Transmission Date: 20260117
  Serious: Yes (Other)
  Sender: ACCORD
  Company Number: CN-MLMSERVICE-20250922-PI653428-00101-1

PATIENT
  Age: 43 Year
  Sex: Female

DRUGS (6)
  1. CISPLATIN [Suspect]
     Active Substance: CISPLATIN
     Indication: Ovarian cancer
     Dosage: 6 CYCLES
     Dates: start: 201911, end: 202003
  2. PACLITAXEL [Suspect]
     Active Substance: PACLITAXEL
     Indication: Ovarian cancer
     Dosage: 6 CYCLES
     Dates: start: 201911, end: 202003
  3. BEVACIZUMAB [Suspect]
     Active Substance: BEVACIZUMAB
     Indication: Ovarian cancer
     Dosage: 6 CYCLES
     Dates: start: 201911, end: 202003
  4. BEVACIZUMAB [Suspect]
     Active Substance: BEVACIZUMAB
     Indication: Disease recurrence
     Dosage: 6 CYCLES
     Dates: start: 201911, end: 202003
  5. PACLITAXEL [Suspect]
     Active Substance: PACLITAXEL
     Indication: Disease recurrence
     Dosage: 6 CYCLES
     Dates: start: 201911, end: 202003
  6. CISPLATIN [Suspect]
     Active Substance: CISPLATIN
     Indication: Disease recurrence
     Dosage: 6 CYCLES
     Dates: start: 201911, end: 202003

REACTIONS (4)
  - Myelosuppression [Unknown]
  - Hypertension [Unknown]
  - Vomiting [Unknown]
  - Alopecia [Unknown]
